FAERS Safety Report 7153382-4 (Version None)
Quarter: 2010Q4

REPORT INFORMATION
  Report Type: 
  Country: None (occurrence: None)
  Receive Date: 20101213
  Receipt Date: 20101202
  Transmission Date: 20110411
  Serious: Yes (Other)
  Sender: FDA-Public Use
  Company Number: US-JNJFOC-20101101517

PATIENT
  Sex: Female
  Weight: 76.2 kg

DRUGS (12)
  1. REMICADE [Suspect]
     Indication: PSORIATIC ARTHROPATHY
     Route: 042
  2. REMICADE [Suspect]
     Route: 042
  3. DIOVAN HCT [Concomitant]
  4. METHOTREXATE [Concomitant]
  5. XYZAL [Concomitant]
  6. ATARAX [Concomitant]
  7. NEXIUM [Concomitant]
  8. VITAMIN D [Concomitant]
  9. FOLIC ACID [Concomitant]
  10. OSCAL NOS [Concomitant]
  11. MOBIC [Concomitant]
  12. NORVASC [Concomitant]

REACTIONS (1)
  - BREAST CANCER [None]
